FAERS Safety Report 5219233-X (Version None)
Quarter: 2007Q1

REPORT INFORMATION
  Report Type: 
  Country: None (occurrence: None)
  Receive Date: 20070125
  Receipt Date: 20070115
  Transmission Date: 20070707
  Serious: Yes (Other)
  Sender: FDA-Public Use
  Company Number: PHBS2007JP00686

PATIENT
  Age: 60 Year
  Sex: Male

DRUGS (10)
  1. ZOMETA [Suspect]
     Indication: BONE LESION
     Dosage: 4 MG, UNK
     Route: 042
     Dates: start: 20061213, end: 20061213
  2. AREDIA [Suspect]
     Indication: BONE LESION
     Dosage: 2 DF, UNK
     Route: 042
     Dates: start: 20040801, end: 20060220
  3. HYPEN [Concomitant]
     Route: 065
  4. PREDNISOLONE [Concomitant]
     Route: 065
  5. MAGMITT KENEI [Concomitant]
     Route: 065
  6. OZEX [Concomitant]
     Route: 065
  7. GASTER [Concomitant]
     Route: 065
  8. PURSENNID [Concomitant]
     Route: 065
  9. GEBEN [Concomitant]
     Route: 065
  10. GLYCERIN [Concomitant]
     Route: 065

REACTIONS (5)
  - BONE DISORDER [None]
  - DENTAL EXAMINATION ABNORMAL [None]
  - DEVICE MALFUNCTION [None]
  - GINGIVAL RECESSION [None]
  - ORAL MUCOSAL EXFOLIATION [None]
